FAERS Safety Report 13245678 (Version 1)
Quarter: 2017Q1

REPORT INFORMATION
  Report Type: Spontaneous
  Country: DE (occurrence: DE)
  Receive Date: 20170217
  Receipt Date: 20170217
  Transmission Date: 20170428
  Serious: No
  Sender: FDA-Public Use
  Company Number: DE-PERNIX THERAPEUTICS-2016PT000079

PATIENT

DRUGS (2)
  1. KEIMAX [Suspect]
     Active Substance: CEFTIBUTEN
     Indication: PRODUCT USED FOR UNKNOWN INDICATION
     Dosage: 400 MG, TOOK TWO CAPSULES AT ONCE
     Route: 048
     Dates: start: 20160309, end: 20160309
  2. KEIMAX [Suspect]
     Active Substance: CEFTIBUTEN
     Dosage: 400 MG, QD
     Route: 048
     Dates: start: 20160310

REACTIONS (1)
  - Accidental overdose [Recovered/Resolved]

NARRATIVE: CASE EVENT DATE: 20160309
